FAERS Safety Report 5216590-5 (Version None)
Quarter: 2007Q1

REPORT INFORMATION
  Report Type: 
  Country: None (occurrence: None)
  Receive Date: 20061130
  Receipt Date: 20060815
  Transmission Date: 20070707
  Serious: Yes (Hospitalization)
  Sender: FDA-Public Use
  Company Number: US200608002714

PATIENT
  Age: 39 Year
  Sex: Male
  Weight: 95.2 kg

DRUGS (1)
  1. ZYPREXA [Suspect]
     Dosage: 20 MG, ORAL
     Route: 048
     Dates: start: 19980101, end: 20050101

REACTIONS (3)
  - DIABETES MELLITUS [None]
  - HYPERGLYCAEMIA [None]
  - METABOLIC DISORDER [None]
